FAERS Safety Report 20360549 (Version 1)
Quarter: 2022Q1

REPORT INFORMATION
  Report Type: Spontaneous
  Country: US (occurrence: US)
  Receive Date: 20220121
  Receipt Date: 20220121
  Transmission Date: 20220423
  Serious: Yes (Other)
  Sender: FDA-Public Use
  Company Number: US-SA-SAC20220119000832

PATIENT
  Age: 65 Year
  Sex: Male

DRUGS (29)
  1. GLYBURIDE [Suspect]
     Active Substance: GLYBURIDE
     Dosage: 4 MG
     Route: 065
     Dates: end: 202111
  2. GLYBURIDE [Suspect]
     Active Substance: GLYBURIDE
     Dosage: 2 MG
  3. TRESIBA [Suspect]
     Active Substance: INSULIN DEGLUDEC
     Dosage: UNK
     Dates: end: 202111
  4. DICLOFENAC [Concomitant]
     Active Substance: DICLOFENAC
  5. FENOFIBRATE [Concomitant]
     Active Substance: FENOFIBRATE
  6. FLUTICASONE [Concomitant]
     Active Substance: FLUTICASONE
  7. ACETAMINOPHEN\HYDROCODONE BITARTRATE [Concomitant]
     Active Substance: ACETAMINOPHEN\HYDROCODONE BITARTRATE
  8. LEVOTHYROXINE [Concomitant]
     Active Substance: LEVOTHYROXINE
  9. LORATADINE [Concomitant]
     Active Substance: LORATADINE
  10. LYRICA [Concomitant]
     Active Substance: PREGABALIN
  11. ANDROGEL [Concomitant]
     Active Substance: TESTOSTERONE
  12. ATORVASTATIN [Concomitant]
     Active Substance: ATORVASTATIN
  13. VITAMIN B COMPLEX W C [ASCORBIC ACID;VITAMIN B COMPLEX] [Concomitant]
  14. CARVEDILOL [Concomitant]
     Active Substance: CARVEDILOL
  15. CYCLOBENZAPRINE [Concomitant]
     Active Substance: CYCLOBENZAPRINE
  16. NITROGLYCERIN [Concomitant]
     Active Substance: NITROGLYCERIN
  17. OMEPRAZOLE [Concomitant]
     Active Substance: OMEPRAZOLE
  18. TORSEMIDE [Concomitant]
     Active Substance: TORSEMIDE
  19. VASCEPA [Concomitant]
     Active Substance: ICOSAPENT ETHYL
  20. HUMALOG [Concomitant]
     Active Substance: INSULIN LISPRO
  21. OZEMPIC [Concomitant]
     Active Substance: SEMAGLUTIDE
  22. GLIMEPIRIDE [Concomitant]
     Active Substance: GLIMEPIRIDE
  23. METFORMIN [Concomitant]
     Active Substance: METFORMIN HYDROCHLORIDE
  24. JARDIANCE [Concomitant]
     Active Substance: EMPAGLIFLOZIN
  25. EPLERENONE [Concomitant]
     Active Substance: EPLERENONE
  26. LACTULOSE [Concomitant]
     Active Substance: LACTULOSE
  27. TORADOL [Concomitant]
     Active Substance: KETOROLAC TROMETHAMINE
  28. ASPIRIN [Concomitant]
     Active Substance: ASPIRIN
  29. COVID-19 VACCINE [Concomitant]

REACTIONS (4)
  - Pneumonia [Unknown]
  - Fall [Unknown]
  - Painful respiration [Unknown]
  - Hypoglycaemia [Recovered/Resolved]

NARRATIVE: CASE EVENT DATE: 20211101
